FAERS Safety Report 19174837 (Version 9)
Quarter: 2022Q1

REPORT INFORMATION
  Report Type: Report from Study
  Country: IL (occurrence: IL)
  Receive Date: 20210423
  Receipt Date: 20220126
  Transmission Date: 20220423
  Serious: Yes (Hospitalization, Other)
  Sender: FDA-Public Use
  Company Number: IL-ABBVIE-21K-082-3846148-00

PATIENT
  Sex: Male

DRUGS (5)
  1. CARBIDOPA\LEVODOPA [Suspect]
     Active Substance: CARBIDOPA\LEVODOPA
     Indication: Parkinson^s disease
     Route: 050
     Dates: start: 20190813
  2. CARBIDOPA\LEVODOPA [Suspect]
     Active Substance: CARBIDOPA\LEVODOPA
     Dosage: MD 8.0ML, CD 3.0ML/HOUR, ED 1.5ML, NIGHT CONTINUOUS DOSAGE 1.5ML/HR
     Route: 050
  3. CITALOPRAM HYDROBROMIDE [Suspect]
     Active Substance: CITALOPRAM HYDROBROMIDE
     Indication: On and off phenomenon
     Route: 065
     Dates: start: 202104, end: 202104
  4. MIDODRINE HYDROCHLORIDE [Concomitant]
     Active Substance: MIDODRINE HYDROCHLORIDE
     Indication: Blood pressure measurement
     Dosage: DOSAGE WAS INCREASED
  5. MIDODRINE HYDROCHLORIDE [Concomitant]
     Active Substance: MIDODRINE HYDROCHLORIDE
     Dosage: DOSAGE WAS INCREASED.

REACTIONS (29)
  - Seizure [Unknown]
  - Dyskinesia [Unknown]
  - Syncope [Recovered/Resolved]
  - Syncope [Recovered/Resolved]
  - Syncope [Recovered/Resolved]
  - Urinary tract infection [Recovering/Resolving]
  - Electrolyte imbalance [Recovered/Resolved]
  - Urinary tract disorder [Unknown]
  - Fungal infection [Unknown]
  - Pulse abnormal [Unknown]
  - Inappropriate schedule of product administration [Unknown]
  - Muscle spasms [Unknown]
  - Dizziness [Unknown]
  - Stoma site erythema [Not Recovered/Not Resolved]
  - Stoma site rash [Unknown]
  - Insomnia [Unknown]
  - Blood pressure orthostatic decreased [Unknown]
  - On and off phenomenon [Recovering/Resolving]
  - Urinary retention [Recovering/Resolving]
  - Malaise [Recovered/Resolved]
  - Dyspnoea [Unknown]
  - Dysphagia [Unknown]
  - Tremor [Recovering/Resolving]
  - Wrong technique in device usage process [Unknown]
  - Bladder catheterisation [Recovering/Resolving]
  - Loss of personal independence in daily activities [Not Recovered/Not Resolved]
  - Bradykinesia [Not Recovered/Not Resolved]
  - Gait disturbance [Not Recovered/Not Resolved]
  - Blood pressure decreased [Not Recovered/Not Resolved]

NARRATIVE: CASE EVENT DATE: 20210101
